FAERS Safety Report 4887164-0 (Version None)
Quarter: 2005Q4

REPORT INFORMATION
  Report Type: 
  Country: None (occurrence: None)
  Receive Date: 20051220
  Receipt Date: 20050404
  Transmission Date: 20060501
  Serious: Yes (Other)
  Sender: FDA-Public Use
  Company Number: HQWYE960411APR05

PATIENT
  Sex: Female
  Weight: 68.1 kg

DRUGS (3)
  1. EFFEXOR XR [Suspect]
     Indication: DEPRESSION
     Dosage: 37.5 MG 1X PER 1 DAY, ORAL
     Route: 048
     Dates: start: 20050324, end: 20050326
  2. WELLBUTRIN XL [Concomitant]
  3. YASMIN [Concomitant]

REACTIONS (3)
  - ABNORMAL SENSATION IN EYE [None]
  - LACRIMATION INCREASED [None]
  - MYDRIASIS [None]
